FAERS Safety Report 9079932 (Version 1)
Quarter: 2013Q1

REPORT INFORMATION
  Report Type: Report from Study
  Country: US (occurrence: US)
  Receive Date: 20130130
  Receipt Date: 20130130
  Transmission Date: 20140127
  Serious: No
  Sender: FDA-Public Use
  Company Number: US-ABBOTT-12P-163-0977339-00

PATIENT
  Age: 54 None
  Sex: Female
  Weight: 103.51 kg

DRUGS (10)
  1. HUMIRA [Suspect]
     Indication: PSORIATIC ARTHROPATHY
     Dates: start: 20120829
  2. HUMIRA [Suspect]
     Dates: start: 20120822, end: 20120822
  3. METFORMIN [Concomitant]
     Indication: GLUCOSE TOLERANCE IMPAIRED
  4. VOLTAREN [Concomitant]
     Indication: PSORIATIC ARTHROPATHY
  5. UNNAMED THYROID MEDICATION [Concomitant]
     Indication: HYPOTHYROIDISM
  6. UNNAMED THYROID MEDICATION [Concomitant]
     Indication: FATIGUE
  7. GABAPENTIN [Concomitant]
     Indication: INTERVERTEBRAL DISC COMPRESSION
  8. GABAPENTIN [Concomitant]
     Indication: HYPOAESTHESIA
  9. PREDNISONE [Concomitant]
     Indication: PSORIATIC ARTHROPATHY
     Dosage: TITRATING DOSES FROM 60 MG DOWN
     Dates: start: 20120819
  10. PREDNISONE [Concomitant]
     Indication: PSORIASIS

REACTIONS (10)
  - Blister [Not Recovered/Not Resolved]
  - Psoriasis [Unknown]
  - Injection site erythema [Recovered/Resolved]
  - Psoriasis [Not Recovered/Not Resolved]
  - Pruritus [Not Recovered/Not Resolved]
  - Local swelling [Not Recovered/Not Resolved]
  - Wound [Not Recovered/Not Resolved]
  - Wound secretion [Not Recovered/Not Resolved]
  - Pain in extremity [Not Recovered/Not Resolved]
  - Injection site pain [Recovered/Resolved]
